FAERS Safety Report 6914634-3 (Version None)
Quarter: 2010Q3

REPORT INFORMATION
  Report Type: 
  Country: None (occurrence: None)
  Receive Date: 20100809
  Receipt Date: 20100803
  Transmission Date: 20110219
  Serious: Yes (Hospitalization)
  Sender: FDA-Public Use
  Company Number: BE-MERCK-1008BEL00003

PATIENT
  Age: 66 Year
  Sex: Male
  Weight: 66 kg

DRUGS (2)
  1. CANCIDAS [Suspect]
     Indication: INFECTION PROPHYLAXIS
     Route: 042
     Dates: start: 20100127, end: 20100127
  2. CANCIDAS [Suspect]
     Route: 042
     Dates: start: 20100128

REACTIONS (1)
  - HYPERKALAEMIA [None]
